FAERS Safety Report 9203103 (Version 2)
Quarter: 2013Q2

REPORT INFORMATION
  Report Type: Spontaneous
  Country: US (occurrence: US)
  Receive Date: 20130402
  Receipt Date: 20130513
  Transmission Date: 20140414
  Serious: No
  Sender: FDA-Public Use
  Company Number: US-SHIRE-ALL1-2013-01979

PATIENT
  Age: 13 Year
  Sex: Male
  Weight: 58.5 kg

DRUGS (3)
  1. VYVANSE [Suspect]
     Indication: ATTENTION DEFICIT/HYPERACTIVITY DISORDER
     Dosage: 40 MG, 1X/DAY:QD
     Route: 048
     Dates: start: 20121019
  2. FLONASE [Concomitant]
     Indication: RHINITIS
     Dosage: UNK, UNKNOWN
     Route: 045
     Dates: start: 201212
  3. ALBUTEROL                          /00139501/ [Concomitant]
     Indication: ASTHMA
     Dosage: UNK, UNKNOWN
     Route: 055
     Dates: start: 2011

REACTIONS (1)
  - Jaundice [Recovering/Resolving]
